FAERS Safety Report 13900984 (Version 3)
Quarter: 2018Q4

REPORT INFORMATION
  Report Type: Spontaneous
  Country: JP (occurrence: JP)
  Receive Date: 20170824
  Receipt Date: 20181204
  Transmission Date: 20190204
  Serious: Yes (Death, Other)
  Sender: FDA-Public Use
  Company Number: JP-PFIZER INC-2017364868

PATIENT
  Age: 50 Year
  Sex: Male

DRUGS (2)
  1. GEMCITABINE HYDROCHLORIDE. [Suspect]
     Active Substance: GEMCITABINE HYDROCHLORIDE
     Dosage: UNK (53% DOSE OF GEMCITABINE WAS ADMINISTERED ONCE)
  2. GEMCITABINE HYDROCHLORIDE. [Suspect]
     Active Substance: GEMCITABINE HYDROCHLORIDE
     Indication: PANCREATIC CARCINOMA METASTATIC
     Dosage: UNK UNK, 2X/WEEK (EIGHTY PERCENT DOSE AFTERNOON BIWEEKLY) (SIX TIMES IN TOTAL)
     Dates: start: 2014

REACTIONS (4)
  - Leukopenia [Unknown]
  - Bacteraemia [Unknown]
  - Cholangitis [Unknown]
  - Cerebral infarction [Unknown]
